FAERS Safety Report 24050062 (Version 1)
Quarter: 2024Q3

REPORT INFORMATION
  Report Type: Spontaneous
  Country: US (occurrence: US)
  Receive Date: 20240704
  Receipt Date: 20240704
  Transmission Date: 20241017
  Serious: Yes (Other)
  Sender: NOVARTIS
  Company Number: US-002147023-NVSC2024US135395

PATIENT
  Sex: Male

DRUGS (3)
  1. AFINITOR [Suspect]
     Active Substance: EVEROLIMUS
     Indication: Product used for unknown indication
     Dosage: UNK
     Route: 065
  2. LENVIMA [Suspect]
     Active Substance: LENVATINIB
     Indication: Renal cancer
     Dosage: 20 MG
     Route: 065
     Dates: start: 202208
  3. LENVIMA [Suspect]
     Active Substance: LENVATINIB
     Dosage: 12 MG
     Route: 065

REACTIONS (7)
  - Arrhythmia [Unknown]
  - Blood pressure increased [Unknown]
  - Blood phosphorus decreased [Unknown]
  - Dehydration [Unknown]
  - Diarrhoea [Unknown]
  - Vomiting [Unknown]
  - Acne [Unknown]
